FAERS Safety Report 17402318 (Version 1)
Quarter: 2020Q1

REPORT INFORMATION
  Report Type: Spontaneous
  Country: US (occurrence: US)
  Receive Date: 20200211
  Receipt Date: 20200211
  Transmission Date: 20200409
  Serious: No
  Sender: FDA-Public Use
  Company Number: US-SA-2020SA033867

PATIENT
  Age: 51 Year
  Sex: Female

DRUGS (1)
  1. LANTUS SOLOSTAR [Suspect]
     Active Substance: INSULIN GLARGINE
     Indication: TYPE 2 DIABETES MELLITUS
     Dosage: 26 IU, BID
     Route: 065
     Dates: start: 201912

REACTIONS (5)
  - Back pain [Unknown]
  - Abdominal distension [Unknown]
  - Blood glucose increased [Unknown]
  - Malaise [Unknown]
  - Off label use [Unknown]
